FAERS Safety Report 14317336 (Version 1)
Quarter: 2017Q4

REPORT INFORMATION
  Report Type: Spontaneous
  Country: TN (occurrence: TN)
  Receive Date: 20171222
  Receipt Date: 20171222
  Transmission Date: 20180321
  Serious: Yes (Other)
  Sender: FDA-Public Use
  Company Number: TN-GUERBET-TN-20170002

PATIENT
  Age: 50 Year
  Sex: Female

DRUGS (2)
  1. UNKNOWN GADOLINIUM BASED CONTRAST AGENT (GBCA) [Suspect]
     Active Substance: GADOLINIUM
     Indication: ANGIOGRAM
     Route: 065
  2. DOTAREM [Suspect]
     Active Substance: GADOTERATE MEGLUMINE

REACTIONS (1)
  - Nephrogenic systemic fibrosis [Unknown]
